FAERS Safety Report 8934122 (Version 1)
Quarter: 2012Q4

REPORT INFORMATION
  Report Type: 
  Country: US (occurrence: US)
  Receive Date: 20121129
  Receipt Date: 20121129
  Transmission Date: 20130627
  Serious: No
  Sender: FDA-Public Use
  Company Number: US-GLAXOSMITHKLINE-A0968836A

PATIENT
  Age: 56 Year
  Sex: Male

DRUGS (4)
  1. BUPROPION [Suspect]
     Indication: DEPRESSION
     Dosage: 150MG Twice per day
     Route: 048
     Dates: start: 1992, end: 20120206
  2. SLEEPING MEDICATION [Concomitant]
  3. ATORVASTATIN [Concomitant]
  4. ZANAFLEX [Concomitant]

REACTIONS (4)
  - Insomnia [Not Recovered/Not Resolved]
  - Hostility [Unknown]
  - Withdrawal syndrome [Unknown]
  - Irritability [Unknown]
